FAERS Safety Report 8551200-0 (Version None)
Quarter: 2012Q3

REPORT INFORMATION
  Report Type: 
  Country: None (occurrence: None)
  Receive Date: 20120730
  Receipt Date: 20120718
  Transmission Date: 20120928
  Serious: Yes (Hospitalization)
  Sender: FDA-Public Use
  Company Number: JP-ELI_LILLY_AND_COMPANY-JP201206004425

PATIENT
  Sex: Female
  Weight: 74 kg

DRUGS (11)
  1. SUNRYTHM [Concomitant]
     Dosage: 50 MG, QD
     Route: 048
     Dates: start: 20120507, end: 20120522
  2. LIMARMONE [Concomitant]
     Dosage: 15 MG, QD
     Route: 048
     Dates: start: 20120507
  3. LOXONIN [Concomitant]
     Dosage: 180 MG, UNK
     Route: 048
     Dates: start: 20120507
  4. OLOPATADINE HCL [Concomitant]
     Dosage: 5 MG, QD
     Route: 048
     Dates: start: 20120507
  5. GASMOTIN [Concomitant]
     Dosage: 15 MG, QD
     Route: 048
     Dates: start: 20120507
  6. FAMOTIDINE [Concomitant]
     Dosage: 20 MG, UNK
     Route: 048
     Dates: start: 20120507
  7. ALDACTONE [Concomitant]
     Dosage: 25 MG, QD
     Route: 048
     Dates: start: 20120507
  8. FORTEO [Suspect]
     Indication: OSTEOPOROSIS
     Dosage: 20 UG, QD
     Route: 058
     Dates: start: 20120515, end: 20120629
  9. LASIX [Concomitant]
     Dosage: 20 MG, QD
     Route: 048
     Dates: start: 20120507
  10. VERAPAMIL HCL [Concomitant]
     Dosage: 80 MG, QD
     Route: 048
     Dates: start: 20120507
  11. LYRICA [Concomitant]
     Dosage: 25 MG, QD
     Route: 048
     Dates: start: 20120518, end: 20120614

REACTIONS (2)
  - PANCREATITIS ACUTE [None]
  - BLOOD PRESSURE DECREASED [None]
